FAERS Safety Report 7700483-5 (Version None)
Quarter: 2011Q3

REPORT INFORMATION
  Report Type: 
  Country: None (occurrence: None)
  Receive Date: 20110822
  Receipt Date: 20110818
  Transmission Date: 20111222
  Serious: Yes (Death, Other)
  Sender: FDA-Public Use
  Company Number: VE-PFIZER INC-2011185856

PATIENT
  Age: 90 Year
  Sex: Female

DRUGS (5)
  1. OMEPRAZOLE [Concomitant]
  2. CORASPIN [Concomitant]
  3. CADUET [Suspect]
     Indication: HYPERTENSION
     Dosage: UNK, 1X/DAY
     Route: 048
     Dates: start: 20080101, end: 20110201
  4. GLUCOPHAGE XR [Concomitant]
  5. OMEGA 3-6-9 [Concomitant]

REACTIONS (2)
  - RECTAL CANCER [None]
  - INTESTINAL OBSTRUCTION [None]
